FAERS Safety Report 8560369-3 (Version None)
Quarter: 2012Q3

REPORT INFORMATION
  Report Type: 
  Country: None (occurrence: None)
  Receive Date: 20120802
  Receipt Date: 20120720
  Transmission Date: 20120928
  Serious: Yes (Disabling, Other)
  Sender: FDA-Public Use
  Company Number: US-MSD-1205USA02825

PATIENT

DRUGS (46)
  1. FOSAMAX [Suspect]
     Indication: OSTEOPOROSIS
     Dosage: ORAL,QW
     Route: 048
     Dates: start: 20020101
  2. BLACK COHOSH [Concomitant]
     Dosage: 540 MG, UNK
  3. UBIDECARENONE [Concomitant]
     Dosage: 120 MG, UNK
  4. VALERIAN [Concomitant]
     Dosage: 450 MG, UNK
  5. GRAPE SEEDS [Concomitant]
     Dosage: 50 MG, UNK
  6. ST JOHNS WORT [Concomitant]
     Dosage: 150 MG, UNK
  7. GINSENG (UNSPECIFIED) [Concomitant]
     Dosage: 500 MG, UNK
  8. TURMERIC [Concomitant]
     Dosage: 400 MG, UNK
  9. BORON (UNSPECIFIED) [Concomitant]
     Dosage: 500 MG, UNK
  10. OMEGA-3 MARINE TRIGLYCERIDES [Concomitant]
     Dosage: 1000 MG, UNK
  11. PSYLLIUM HUSK [Concomitant]
     Dosage: 500 MG, UNK
  12. 3-ACETYL-7-OXO-DEHYDROEPIANDROSTERONE [Concomitant]
     Dosage: 25 MG, UNK
  13. NIACIN [Concomitant]
     Dosage: 500 MG, UNK
  14. CABBAGE PALM [Concomitant]
     Dosage: 1000 MG, UNK
  15. LEVOCARNITINE [Concomitant]
     Dosage: 500 MG, UNK
  16. CHROMIUM PICOLINATE [Concomitant]
     Dosage: 200 MICROGRAM, UNK
  17. HAWTHORN [Concomitant]
     Dosage: 565 MG, UNK
  18. VITAMIN E [Concomitant]
     Dosage: 400 IU, UNK
  19. GINKGO [Concomitant]
     Dosage: 60 MG, UNK
  20. ZINC (UNSPECIFIED) [Concomitant]
     Dosage: 50 MG, UNK
  21. CINNAMON [Concomitant]
     Dosage: 500 MG, UNK
  22. RESVERATROL [Concomitant]
     Dosage: 50 MG, UNK
  23. GOTU KOLA [Concomitant]
     Dosage: 250 MG, UNK
  24. SELENIUM (UNSPECIFIED) [Concomitant]
     Dosage: 200 MG, UNK
  25. BIOTIN [Concomitant]
     Dosage: 200 MICROGRAM,
  26. POTASSIUM (UNSPECIFIED) [Concomitant]
     Dosage: 99 MG, UNK
  27. MILK THISTLE [Concomitant]
     Dosage: 1000 MG, UNK
  28. CRANBERRY [Concomitant]
     Dosage: 140 MG, UNK
  29. BROMELAINS [Concomitant]
     Dosage: 500 MG, UNK
  30. GARLIC [Concomitant]
     Dosage: 500 MG, UNK
  31. FLAXSEED [Concomitant]
     Dosage: 1000 MG, UNK
  32. ARGININE [Concomitant]
     Dosage: 500 MG, UNK
  33. XANTHOPHYLL [Concomitant]
     Dosage: 6 MG, UNK
  34. MAGNESIUM (UNSPECIFIED) [Concomitant]
     Dosage: 30 MG, UNK
  35. INOSITOL [Concomitant]
     Dosage: 650 MG, UNK
  36. EVENING PRIMROSE OIL [Concomitant]
     Dosage: 500 MG, UNK
  37. VITAMINS (UNSPECIFIED) [Concomitant]
     Dosage: UNK
  38. VITAMIN D (UNSPECIFIED) [Concomitant]
     Dosage: 1000 IU, UNK
  39. THIOCTIC ACID [Concomitant]
     Dosage: 100 MG, UNK
  40. GINGER [Concomitant]
     Dosage: 500 MG, UNK
  41. CALCIUM (UNSPECIFIED) [Concomitant]
     Dosage: 1200 MG, UNK
  42. GLUCOSAMINE [Concomitant]
     Dosage: 1500 MG, UNK
  43. TAURINE [Concomitant]
     Dosage: 500 MG, UNK
  44. LACTOBACILLUS ACIDOPHILUS (+) VITAMIN B COMPLEX [Concomitant]
     Dosage: 500 MG, UNK
  45. MELATONIN [Concomitant]
     Dosage: 10 MG, UNK
  46. SOUR CHERRY [Concomitant]
     Dosage: 1000 MG, UNK

REACTIONS (9)
  - FEMUR FRACTURE [None]
  - STRESS FRACTURE [None]
  - OSTEOPOROSIS [None]
  - LOW TURNOVER OSTEOPATHY [None]
  - FOOT FRACTURE [None]
  - GAIT DISTURBANCE [None]
  - INJURY [None]
  - BLOOD CHOLESTEROL INCREASED [None]
  - LIMB ASYMMETRY [None]
